FAERS Safety Report 6206110-0 (Version None)
Quarter: 2009Q2

REPORT INFORMATION
  Report Type: 
  Country: None (occurrence: None)
  Receive Date: 20090526
  Receipt Date: 20090520
  Transmission Date: 20091009
  Serious: Yes (Other)
  Sender: FDA-Public Use
  Company Number: 1000005861

PATIENT
  Age: 60 Year
  Sex: Male

DRUGS (8)
  1. LEXAPRO [Suspect]
     Indication: DEPRESSION
     Dosage: 20 MG (20 MG, 1 IN 1 D), ORAL
     Route: 048
     Dates: start: 20090309
  2. DIOVAN [Concomitant]
  3. NORVASC [Concomitant]
  4. MELOXICAM [Concomitant]
  5. LOVASTATIN [Concomitant]
  6. NEXIUM [Concomitant]
  7. VITAMIN D [Concomitant]
  8. FLOMAX [Concomitant]

REACTIONS (4)
  - CHRONIC OBSTRUCTIVE PULMONARY DISEASE [None]
  - CONDITION AGGRAVATED [None]
  - LYMPHOCYTOSIS [None]
  - PULMONARY OEDEMA [None]
